FAERS Safety Report 6031781-1 (Version None)
Quarter: 2009Q1

REPORT INFORMATION
  Report Type: 
  Country: None (occurrence: None)
  Receive Date: 20090108
  Receipt Date: 20090106
  Transmission Date: 20090719
  Serious: Yes (Hospitalization)
  Sender: FDA-Public Use
  Company Number: US-JNJFOC-20090100995

PATIENT
  Sex: Female
  Weight: 120.2 kg

DRUGS (16)
  1. FENTANYL TRANSDERMAL SYSTEM [Suspect]
     Indication: BACK PAIN
     Route: 062
  2. FENTANYL TRANSDERMAL SYSTEM [Suspect]
     Indication: BACK PAIN
     Route: 062
  3. CYMBALTA [Concomitant]
     Indication: DEPRESSION
     Route: 048
  4. PROVIGIL [Concomitant]
     Indication: DEPRESSION
     Route: 048
  5. DETROL LA [Concomitant]
     Indication: INCONTINENCE
     Dosage: ^5MG^/CAPSULE/UNSPECIFIED/DAILY/ORAL
     Route: 048
  6. CRESTOR [Concomitant]
     Indication: BLOOD CHOLESTEROL
     Route: 048
  7. NEXIUM [Concomitant]
     Indication: GASTROOESOPHAGEAL REFLUX DISEASE
     Route: 048
  8. BENZAPRIL [Concomitant]
     Indication: HYPERTENSION
     Route: 048
  9. ACTOS [Concomitant]
     Indication: DIABETES MELLITUS
     Route: 048
  10. XYZAL [Concomitant]
     Indication: MULTIPLE ALLERGIES
     Dosage: 5MG/TABLET/15MG/DAILY/ORAL
     Route: 048
  11. MULTI-VITAMIN [Concomitant]
     Indication: GENERAL PHYSICAL CONDITION
     Route: 048
  12. ASPIRIN [Concomitant]
     Indication: CARDIAC DISORDER
     Route: 048
  13. CALTRATE PLUS D [Concomitant]
     Indication: OSTEOPENIA
     Route: 048
  14. MAGNESIUM SULFATE [Concomitant]
     Indication: TREMOR
     Route: 048
  15. MAGNESIUM SULFATE [Concomitant]
     Indication: MUSCLE SPASMS
     Route: 048
  16. LEVOTHYROXINE SODIUM [Concomitant]
     Indication: THYROID DISORDER
     Route: 048

REACTIONS (7)
  - GALLBLADDER DISORDER [None]
  - HEPATIC ENZYME INCREASED [None]
  - PANCREATITIS [None]
  - RASH [None]
  - SILENT MYOCARDIAL INFARCTION [None]
  - WEIGHT INCREASED [None]
  - WRONG TECHNIQUE IN DRUG USAGE PROCESS [None]
